FAERS Safety Report 25250896 (Version 1)
Quarter: 2025Q2

REPORT INFORMATION
  Report Type: Spontaneous
  Country: US (occurrence: US)
  Receive Date: 20250429
  Receipt Date: 20250429
  Transmission Date: 20250717
  Serious: Yes (Hospitalization)
  Sender: KARYOPHARM THERAPEUTICS
  Company Number: US-KARYOPHARM-2025KPT100188

PATIENT
  Age: 70 Year
  Sex: Male
  Weight: 77 kg

DRUGS (13)
  1. SELINEXOR [Suspect]
     Active Substance: SELINEXOR
     Indication: Plasma cell myeloma
     Dates: end: 2024
  2. SELINEXOR [Suspect]
     Active Substance: SELINEXOR
     Route: 048
     Dates: start: 202502, end: 202504
  3. ACYCLOVIR [Concomitant]
     Active Substance: ACYCLOVIR
  4. AMLODIPINE [Concomitant]
     Active Substance: AMLODIPINE BESYLATE
  5. CLONIDINE [Concomitant]
     Active Substance: CLONIDINE
  6. DARAPRIM [Concomitant]
     Active Substance: PYRIMETHAMINE
  7. DEXAMETHASONE [Concomitant]
     Active Substance: DEXAMETHASONE
  8. HYDROMORPHONE [Concomitant]
     Active Substance: HYDROMORPHONE
  9. LORAZEPAM [Concomitant]
     Active Substance: LORAZEPAM
  10. MORPHINE SULFATE [Concomitant]
     Active Substance: MORPHINE SULFATE
  11. ONDANSETRON [Concomitant]
     Active Substance: ONDANSETRON
  12. PANTOPRAZOLE [Concomitant]
     Active Substance: PANTOPRAZOLE
  13. POMALYST [Concomitant]
     Active Substance: POMALIDOMIDE

REACTIONS (4)
  - Blood potassium abnormal [Unknown]
  - Blood calcium abnormal [Unknown]
  - Laboratory test abnormal [Unknown]
  - Drug ineffective [Unknown]

NARRATIVE: CASE EVENT DATE: 20240901
